FAERS Safety Report 22054307 (Version 1)
Quarter: 2023Q1

REPORT INFORMATION
  Report Type: Spontaneous
  Country: US (occurrence: US)
  Receive Date: 20230302
  Receipt Date: 20230302
  Transmission Date: 20230417
  Serious: No
  Sender: FDA-Public Use
  Company Number: US-NOVOPROD-1008404

PATIENT
  Sex: Female

DRUGS (1)
  1. SAXENDA [Suspect]
     Active Substance: LIRAGLUTIDE
     Indication: Product used for unknown indication
     Dosage: 0.6MG
     Route: 058

REACTIONS (3)
  - Throat irritation [Recovered/Resolved]
  - Skin swelling [Recovered/Resolved]
  - Hypersensitivity [Recovered/Resolved]
